FAERS Safety Report 22878479 (Version 3)
Quarter: 2023Q4

REPORT INFORMATION
  Report Type: Spontaneous
  Country: US (occurrence: US)
  Receive Date: 20230829
  Receipt Date: 20231018
  Transmission Date: 20240110
  Serious: Yes (Death)
  Sender: FDA-Public Use
  Company Number: US-BIOVITRUM-2023-US-013730

PATIENT
  Age: 11 Month
  Sex: Female

DRUGS (2)
  1. PALIVIZUMAB [Suspect]
     Active Substance: PALIVIZUMAB
     Indication: Antiviral prophylaxis
     Dosage: 15 MILLIGRAM (S)/KILOGRAM
     Route: 030
  2. PALIVIZUMAB [Suspect]
     Active Substance: PALIVIZUMAB
     Indication: Pneumonia respiratory syncytial viral
     Dosage: 30 MILLIGRAM (S)/KILOGRAM
     Route: 030

REACTIONS (3)
  - Respiratory syncytial virus infection [Fatal]
  - Drug resistance [Fatal]
  - Drug ineffective [Unknown]
